FAERS Safety Report 23663032 (Version 1)
Quarter: 2024Q1

REPORT INFORMATION
  Report Type: Spontaneous
  Country: IL (occurrence: IL)
  Receive Date: 20240322
  Receipt Date: 20240322
  Transmission Date: 20240410
  Serious: Yes (Life-Threatening)
  Sender: FDA-Public Use
  Company Number: IL-Merck Healthcare KGaA-2024014881

PATIENT
  Sex: Female

DRUGS (1)
  1. EUTHYROX [Suspect]
     Active Substance: LEVOTHYROXINE SODIUM
     Indication: Product used for unknown indication
     Dosage: DOSAGE : 200
     Dates: start: 20240201

REACTIONS (10)
  - Abdominal pain upper [Unknown]
  - Defaecation urgency [Unknown]
  - Fatigue [Unknown]
  - Dizziness [Unknown]
  - Ocular discomfort [Unknown]
  - Syncope [Unknown]
  - Blood thyroid stimulating hormone increased [Unknown]
  - Vitamin D abnormal [Unknown]
  - Headache [Unknown]
  - Hyperhidrosis [Unknown]
